FAERS Safety Report 8818763 (Version 1)
Quarter: 2012Q4

REPORT INFORMATION
  Report Type: 
  Country: US (occurrence: US)
  Receive Date: 20121001
  Receipt Date: 20121001
  Transmission Date: 20130627
  Serious: No
  Sender: FDA-Public Use
  Company Number: US-BAYER-2012-102095

PATIENT
  Age: 51 Year
  Sex: Female
  Weight: 95.24 kg

DRUGS (24)
  1. VITAMIN E [Concomitant]
     Dosage: 400 u, UNK
     Route: 048
  2. FISH OIL [Concomitant]
     Dosage: 1000 mg, UNK
     Route: 048
  3. CALCIUM WITH VITAMIN D [Concomitant]
  4. VITAMIN C [Concomitant]
     Dosage: 500 mg, UNK
     Route: 048
  5. VITAMIN B12 NOS [Concomitant]
     Dosage: 50 ?g, UNK
     Route: 048
  6. VITAMIN D3 [Concomitant]
     Dosage: 1000 u, UNK
     Route: 048
  7. GINSENG [Concomitant]
     Dosage: 250 mg, UNK
     Route: 048
  8. IRON [Concomitant]
     Dosage: 18 mg, UNK
     Route: 048
  9. ZINC [Concomitant]
     Dosage: 30 mg, UNK
     Route: 048
  10. PRILOSEC [Concomitant]
     Dosage: 10 mg, UNK
     Route: 048
  11. FIBERCON [Concomitant]
     Dosage: 625 mg, UNK
     Route: 048
  12. OMEGA 3 [Concomitant]
     Dosage: 1000 mg, UNK
     Route: 048
  13. BETASERON [Suspect]
     Dosage: 0.25 mg (1mL), QOD
     Route: 058
  14. BACLOFEN [Concomitant]
     Dosage: 20 mg, UNK
     Route: 048
  15. LASIX [Concomitant]
     Dosage: 40 mg, UNK
     Route: 048
  16. LAMOTRIGINE [Concomitant]
     Dosage: 25 mg, UNK
     Route: 048
  17. AMITRIPTYLIN [Concomitant]
     Dosage: 25 mg, UNK
     Route: 048
  18. ZOLPIDEM [Concomitant]
     Dosage: 10 mg, UNK
     Route: 048
  19. LEVOTHYROXIN [Concomitant]
     Dosage: 75MCG
     Route: 048
  20. KLOR-CON [Concomitant]
     Route: 048
  21. RISPERDAL [Concomitant]
     Dosage: 3 mg, UNK
     Route: 048
  22. NEURONTIN [Concomitant]
     Dosage: 100 mg, UNK
     Route: 048
  23. VENLAFAXINE [Concomitant]
     Dosage: 75 mg, UNK
     Route: 048
  24. KLONOPIN [Concomitant]
     Dosage: 1 mg, UNK
     Route: 048

REACTIONS (4)
  - Constipation [Unknown]
  - Vision blurred [Unknown]
  - Paraesthesia [Unknown]
  - Hypoaesthesia [Unknown]
